FAERS Safety Report 8166130-6 (Version None)
Quarter: 2012Q1

REPORT INFORMATION
  Report Type: 
  Country: None (occurrence: None)
  Receive Date: 20120223
  Receipt Date: 20120223
  Transmission Date: 20120608
  Serious: No
  Sender: FDA-Public Use
  Company Number: None

PATIENT
  Age: 64 Year
  Sex: Female

DRUGS (1)
  1. ENBREL [Suspect]
     Indication: RHEUMATOID ARTHRITIS
     Dosage: 50MG WEEKLY SQ
     Route: 058
     Dates: start: 20120208, end: 20120216

REACTIONS (4)
  - DIZZINESS [None]
  - DISTURBANCE IN ATTENTION [None]
  - HEADACHE [None]
  - ALTERED STATE OF CONSCIOUSNESS [None]
